FAERS Safety Report 5846602-7 (Version None)
Quarter: 2008Q3

REPORT INFORMATION
  Report Type: 
  Country: None (occurrence: None)
  Receive Date: 20080815
  Receipt Date: 20080806
  Transmission Date: 20090109
  Serious: Yes (Hospitalization)
  Sender: FDA-Public Use
  Company Number: JP-JNJFOC-20080801996

PATIENT
  Age: 75 Year
  Sex: Male

DRUGS (2)
  1. REMICADE [Suspect]
     Indication: RHEUMATOID ARTHRITIS
     Route: 042
  2. STEROIDS [Concomitant]

REACTIONS (3)
  - ANEURYSM RUPTURED [None]
  - PSOAS ABSCESS [None]
  - SALMONELLOSIS [None]
